FAERS Safety Report 24572469 (Version 1)
Quarter: 2024Q4

REPORT INFORMATION
  Report Type: Spontaneous
  Country: US (occurrence: None)
  Receive Date: 20241101
  Receipt Date: 20241101
  Transmission Date: 20250115
  Serious: Yes (Life-Threatening, Other)
  Sender: Public
  Company Number: None

PATIENT
  Age: 77 Year
  Sex: Female
  Weight: 81.3 kg

DRUGS (1)
  1. LECANEMAB [Suspect]
     Active Substance: LECANEMAB
     Indication: Dementia Alzheimer^s type
     Dosage: OTHER FREQUENCY : Q 2 WEEKS;?
     Route: 042
     Dates: start: 20240522

REACTIONS (1)
  - Leukocytosis [None]

NARRATIVE: CASE EVENT DATE: 20241029
